FAERS Safety Report 20414610 (Version 4)
Quarter: 2024Q4

REPORT INFORMATION
  Report Type: Report from Study
  Country: US (occurrence: US)
  Receive Date: 20220202
  Receipt Date: 20241004
  Transmission Date: 20250114
  Serious: Yes (Hospitalization, Other)
  Sender: BAUSCH AND LOMB
  Company Number: US-BAUSCH-BL-2022-003053

PATIENT
  Age: 68 Year
  Sex: Female

DRUGS (5)
  1. XIFAXAN [Suspect]
     Active Substance: RIFAXIMIN
     Indication: Product used for unknown indication
     Route: 048
  2. XIFAXAN [Suspect]
     Active Substance: RIFAXIMIN
     Route: 048
  3. XIFAXAN [Suspect]
     Active Substance: RIFAXIMIN
     Route: 048
     Dates: start: 20230602
  4. XIFAXAN [Suspect]
     Active Substance: RIFAXIMIN
     Route: 048
  5. LYRICA [Suspect]
     Active Substance: PREGABALIN
     Indication: Product used for unknown indication
     Route: 065

REACTIONS (9)
  - Intestinal obstruction [Unknown]
  - Upper limb fracture [Unknown]
  - Feeling abnormal [Unknown]
  - Fall [Unknown]
  - Nausea [Unknown]
  - Abdominal pain upper [Unknown]
  - Therapy interrupted [Unknown]
  - Intentional product misuse [Unknown]
  - Insurance issue [Unknown]

NARRATIVE: CASE EVENT DATE: 20230503
